FAERS Safety Report 15749031 (Version 1)
Quarter: 2018Q4

REPORT INFORMATION
  Report Type: Spontaneous
  Country: US (occurrence: US)
  Receive Date: 20181205
  Receipt Date: 20181205
  Transmission Date: 20190205
  Serious: No
  Sender: FDA-Public Use
  Company Number: None

PATIENT
  Age: 53 Year
  Sex: Female
  Weight: 132 kg

DRUGS (1)
  1. ESOMEPRAZOLE 40 MG [Suspect]
     Active Substance: ESOMEPRAZOLE
     Indication: GASTROOESOPHAGEAL REFLUX DISEASE
     Route: 048
     Dates: start: 20181102, end: 20181203

REACTIONS (3)
  - Diarrhoea [None]
  - Product substitution issue [None]
  - Drug ineffective [None]
